FAERS Safety Report 5053265-X (Version None)
Quarter: 2006Q3

REPORT INFORMATION
  Report Type: 
  Country: None (occurrence: None)
  Receive Date: 20060712
  Receipt Date: 20060628
  Transmission Date: 20061208
  Serious: Yes (Other)
  Sender: FDA-Public Use
  Company Number: 13792

PATIENT
  Age: 55 Year
  Sex: Female

DRUGS (3)
  1. PAMIDRONATE DISODIUM [Suspect]
     Indication: DRUG THERAPY
     Dates: start: 20000101, end: 20040407
  2. CHEMOTHERAPY [Concomitant]
  3. INTERFERON [Concomitant]

REACTIONS (7)
  - IMPAIRED HEALING [None]
  - JAW DISORDER [None]
  - ORAL CAVITY FISTULA [None]
  - OSTEONECROSIS [None]
  - SURGICAL PROCEDURE REPEATED [None]
  - TOOTH EXTRACTION [None]
  - WOUND DEHISCENCE [None]
